FAERS Safety Report 8418113-6 (Version None)
Quarter: 2012Q2

REPORT INFORMATION
  Report Type: 
  Country: None (occurrence: None)
  Receive Date: 20120531
  Receipt Date: 20120515
  Transmission Date: 20120825
  Serious: Yes (Other)
  Sender: FDA-Public Use
  Company Number: 2012-2295

PATIENT
  Age: 19 Year
  Sex: Female

DRUGS (1)
  1. SOMATULINE DEPOT [Suspect]
     Indication: ACROMEGALY
     Dosage: 60 MG (60 MG, 1 IN 28 D), SUBCUTAENOUS
     Route: 058
     Dates: start: 20110618

REACTIONS (4)
  - SUICIDAL IDEATION [None]
  - PAIN [None]
  - DRUG DOSE OMISSION [None]
  - FATIGUE [None]
